FAERS Safety Report 15661623 (Version 1)
Quarter: 2018Q4

REPORT INFORMATION
  Report Type: Report from Study
  Country: RO (occurrence: RO)
  Receive Date: 20181127
  Receipt Date: 20181127
  Transmission Date: 20190205
  Serious: Yes (Death, Other)
  Sender: FDA-Public Use
  Company Number: RO-GILEAD-2018-0376352

PATIENT
  Age: 70 Year
  Sex: Female

DRUGS (6)
  1. LEDIPASVIR/SOFOSBUVIR [Suspect]
     Active Substance: LEDIPASVIR\SOFOSBUVIR
     Indication: HEPATITIS C
     Dosage: 1 DF, QD
     Route: 048
     Dates: start: 20180411, end: 20180525
  2. NORMIX [Concomitant]
     Active Substance: RIFAXIMIN
  3. SPIRONOLACTONA [Concomitant]
     Active Substance: SPIRONOLACTONE
  4. URSOFALK [Concomitant]
     Active Substance: URSODIOL
  5. LEDIPASVIR/SOFOSBUVIR [Suspect]
     Active Substance: LEDIPASVIR\SOFOSBUVIR
     Indication: HEPATIC CIRRHOSIS
  6. FUROSEMID [FUROSEMIDE] [Concomitant]

REACTIONS (1)
  - Cardio-respiratory arrest [Fatal]

NARRATIVE: CASE EVENT DATE: 20180525
